FAERS Safety Report 7623586-2 (Version None)
Quarter: 2011Q3

REPORT INFORMATION
  Report Type: 
  Country: None (occurrence: None)
  Receive Date: 20110720
  Receipt Date: 20110708
  Transmission Date: 20111222
  Serious: Yes (Hospitalization)
  Sender: FDA-Public Use
  Company Number: IE-ELI_LILLY_AND_COMPANY-IE201103008799

PATIENT
  Sex: Female

DRUGS (13)
  1. CALCIUM CARBONATE [Concomitant]
  2. PARALIEF [Concomitant]
  3. PANTOPRAZOLE SODIUM [Concomitant]
     Dosage: 30 MG, QD
  4. FLURAZEPAM [Concomitant]
     Dosage: 15 MG, NOCTE
  5. SIMVASTATIN [Concomitant]
     Dosage: 20 MG, NOCTE
  6. VENTOLIN [Concomitant]
  7. SOLPADOL [Concomitant]
  8. ASPIRIN [Concomitant]
     Dosage: 75 G, QD
  9. SERTRALINE HYDROCHLORIDE [Concomitant]
     Dosage: 50 MG, DAILY
  10. SENNA [Concomitant]
     Dosage: UNK, NOCTE
  11. FORTEO [Suspect]
     Indication: OSTEOPOROSIS
     Dosage: 20 UG, DAILY
     Route: 058
     Dates: start: 20110311, end: 20110401
  12. LIPITOR [Concomitant]
  13. BUTRANS [Concomitant]
     Dosage: 5 MG, WEEKLY (1/W)

REACTIONS (12)
  - VOMITING [None]
  - HYPOTHERMIA [None]
  - ELECTROENCEPHALOGRAM ABNORMAL [None]
  - PANCREATIC DISORDER [None]
  - DECREASED APPETITE [None]
  - SUPERINFECTION BACTERIAL [None]
  - HERPES ZOSTER [None]
  - DEHYDRATION [None]
  - HYPOGLYCAEMIA [None]
  - NAUSEA [None]
  - DELIRIUM [None]
  - MUSCULOSKELETAL PAIN [None]
